FAERS Safety Report 15095530 (Version 1)
Quarter: 2018Q3

REPORT INFORMATION
  Report Type: Report from Study
  Country: IT (occurrence: IT)
  Receive Date: 20180702
  Receipt Date: 20180702
  Transmission Date: 20181010
  Serious: Yes (Hospitalization)
  Sender: FDA-Public Use
  Company Number: IT-TEVA-2018-IT-919949

PATIENT
  Age: 61 Year
  Sex: Male

DRUGS (6)
  1. CARDIOASPIRIN 100 MG COMPRESSE GASTRORESISTENTI [Concomitant]
     Active Substance: ASPIRIN
     Route: 065
  2. LANSOX 30 MG CAPSULE RIGIDE [Concomitant]
     Route: 065
  3. AMOXICILLINA/ACIDO CLAVULANICO [Suspect]
     Active Substance: AMOXICILLIN\CLAVULANIC ACID
     Indication: UPPER RESPIRATORY TRACT INFECTION
     Route: 048
     Dates: start: 20171203, end: 20171203
  4. BISOPROLOL FUMARATE. [Concomitant]
     Active Substance: BISOPROLOL FUMARATE
     Route: 065
  5. TORVAST [Concomitant]
     Active Substance: ATORVASTATIN
     Route: 065
  6. ENAPREN 20 MG COMPRESSE [Concomitant]
     Route: 065

REACTIONS (8)
  - Myocardial infarction [Unknown]
  - Erythema [Unknown]
  - Loss of consciousness [Unknown]
  - Chest pain [Unknown]
  - Anaphylactic shock [Unknown]
  - Pruritus [Unknown]
  - Dyspnoea [Unknown]
  - Medication error [Unknown]

NARRATIVE: CASE EVENT DATE: 20171203
